FAERS Safety Report 24354592 (Version 1)
Quarter: 2024Q3

REPORT INFORMATION
  Report Type: Spontaneous
  Country: FR (occurrence: FR)
  Receive Date: 20240923
  Receipt Date: 20240923
  Transmission Date: 20241017
  Serious: Yes (Other)
  Sender: PURDUE
  Company Number: FR-PURDUE-USA-2024-0312101

PATIENT
  Age: 28 Year
  Sex: Male

DRUGS (9)
  1. OXYCODONE HYDROCHLORIDE [Suspect]
     Active Substance: OXYCODONE HYDROCHLORIDE
     Indication: Product used for unknown indication
     Dosage: UNK
     Route: 065
  2. OXYCODONE HYDROCHLORIDE [Suspect]
     Active Substance: OXYCODONE HYDROCHLORIDE
     Dosage: 1 TABLET
     Route: 042
     Dates: start: 20240829, end: 20240829
  3. CATHINONE [Suspect]
     Active Substance: CATHINONE
     Indication: Product used for unknown indication
     Dosage: UNK
     Route: 065
  4. MORPHINE SULFATE [Suspect]
     Active Substance: MORPHINE SULFATE
     Indication: Product used for unknown indication
     Dosage: UNK
     Route: 042
  5. MORPHINE SULFATE [Suspect]
     Active Substance: MORPHINE SULFATE
     Dosage: 14 CAPSULES
     Route: 042
     Dates: start: 20240829, end: 20240829
  6. COCAINE [Suspect]
     Active Substance: COCAINE
     Indication: Product used for unknown indication
     Dosage: UNK
     Route: 042
  7. COCAINE [Suspect]
     Active Substance: COCAINE
     Dosage: 0.5MG
     Route: 042
     Dates: start: 20240830, end: 20240830
  8. COCAINE [Suspect]
     Active Substance: COCAINE
     Dosage: 2G
     Route: 042
     Dates: start: 20240829, end: 20240829
  9. CANNABIS SATIVA SUBSP. INDICA TOP [Suspect]
     Active Substance: CANNABIS SATIVA SUBSP. INDICA TOP
     Indication: Product used for unknown indication
     Dosage: 4 TO 5 PER MONTH

REACTIONS (7)
  - Seizure [Recovered/Resolved]
  - Wound [Recovering/Resolving]
  - Craniocerebral injury [Recovered/Resolved]
  - Headache [Recovering/Resolving]
  - Hyperhidrosis [Recovered/Resolved]
  - Drug abuse [Not Recovered/Not Resolved]
  - Product use issue [Not Recovered/Not Resolved]

NARRATIVE: CASE EVENT DATE: 20240830
